FAERS Safety Report 15179710 (Version 1)
Quarter: 2018Q3

REPORT INFORMATION
  Report Type: Spontaneous
  Country: IN (occurrence: IN)
  Receive Date: 20180623
  Receipt Date: 20180623
  Transmission Date: 20181010
  Serious: No
  Sender: FDA-Public Use
  Company Number: None

PATIENT
  Age: 72 Year
  Sex: Male
  Weight: 57 kg

DRUGS (2)
  1. EDARAVONE INJECTION ARAVON [Suspect]
     Active Substance: EDARAVONE
     Indication: MOTOR NEURONE DISEASE
     Dosage: ?          QUANTITY:1.5 GTT DROP(S);OTHER ROUTE:STARTED FROM 21/05/18?
     Dates: start: 20180521, end: 20180623
  2. RILUZOLE. [Concomitant]
     Active Substance: RILUZOLE

REACTIONS (1)
  - Vertigo [None]

NARRATIVE: CASE EVENT DATE: 20180621
